FAERS Safety Report 14355872 (Version 1)
Quarter: 2018Q1

REPORT INFORMATION
  Report Type: Report from Study
  Country: US (occurrence: US)
  Receive Date: 20180105
  Receipt Date: 20180105
  Transmission Date: 20180509
  Serious: Yes (Hospitalization)
  Sender: FDA-Public Use
  Company Number: US-JNJFOC-20180104239

PATIENT
  Sex: Male

DRUGS (20)
  1. PREDNISONE. [Concomitant]
     Active Substance: PREDNISONE
  2. ZOLOFT [Concomitant]
     Active Substance: SERTRALINE HYDROCHLORIDE
  3. SYMBICORT [Concomitant]
     Active Substance: BUDESONIDE\FORMOTEROL FUMARATE DIHYDRATE
  4. NORVASC [Concomitant]
     Active Substance: AMLODIPINE BESYLATE
  5. CEFUROXIME. [Concomitant]
     Active Substance: CEFUROXIME
  6. CLARITIN [Concomitant]
     Active Substance: LORATADINE
  7. GABAPENTIN. [Concomitant]
     Active Substance: GABAPENTIN
  8. SPIRONOLACTONE. [Concomitant]
     Active Substance: SPIRONOLACTONE
  9. DAPSONE. [Concomitant]
     Active Substance: DAPSONE
  10. PROTONIX [Concomitant]
     Active Substance: PANTOPRAZOLE SODIUM
  11. VALACYCLOVIR [Concomitant]
     Active Substance: VALACYCLOVIR HYDROCHLORIDE
  12. DICYCLOMINE [Concomitant]
     Active Substance: DICYCLOMINE HYDROCHLORIDE
  13. OXYCODONE [Concomitant]
     Active Substance: OXYCODONE
  14. TACROLIMUS. [Concomitant]
     Active Substance: TACROLIMUS
  15. IMBRUVICA [Suspect]
     Active Substance: IBRUTINIB
     Indication: ACUTE MYELOID LEUKAEMIA
     Route: 048
     Dates: start: 20171016
  16. CLOBETASOL [Concomitant]
     Active Substance: CLOBETASOL
  17. HUMULIN NOS [Concomitant]
     Active Substance: INSULIN HUMAN
  18. URSODIOL. [Concomitant]
     Active Substance: URSODIOL
  19. BENZYLPENICILLIN [Concomitant]
     Active Substance: PENICILLIN G
  20. VORICONAZOLE. [Concomitant]
     Active Substance: VORICONAZOLE

REACTIONS (1)
  - Hepatic cirrhosis [Unknown]
